FAERS Safety Report 15139204 (Version 1)
Quarter: 2018Q3

REPORT INFORMATION
  Report Type: Spontaneous
  Country: US (occurrence: US)
  Receive Date: 20180713
  Receipt Date: 20180713
  Transmission Date: 20181010
  Serious: Yes (Other)
  Sender: FDA-Public Use
  Company Number: US-PFIZER INC-2018278313

PATIENT
  Age: 72 Year
  Sex: Female

DRUGS (1)
  1. IBRANCE [Suspect]
     Active Substance: PALBOCICLIB
     Indication: BREAST CANCER METASTATIC
     Dosage: 125 MG, UNK

REACTIONS (6)
  - Arthritis [Unknown]
  - Thyroid disorder [Unknown]
  - Pollakiuria [Unknown]
  - Left ventricular hypertrophy [Unknown]
  - Escherichia sepsis [Unknown]
  - Hypercholesterolaemia [Unknown]
